FAERS Safety Report 23994514 (Version 2)
Quarter: 2024Q2

REPORT INFORMATION
  Report Type: Report from Study
  Country: BR (occurrence: BR)
  Receive Date: 20240620
  Receipt Date: 20240622
  Transmission Date: 20240715
  Serious: Yes (Other)
  Sender: FDA-Public Use
  Company Number: BR-JNJFOC-20240638683

PATIENT
  Age: 37 Year
  Sex: Female
  Weight: 96 kg

DRUGS (2)
  1. INFLIXIMAB [Suspect]
     Active Substance: INFLIXIMAB
     Indication: Psoriatic arthropathy
     Dosage: 8 AMPOULES
     Route: 041
  2. REMICADE [Suspect]
     Active Substance: INFLIXIMAB
     Indication: Psoriatic arthropathy
     Dosage: 8 AMPOULES
     Route: 041
     Dates: start: 20220309, end: 20231208

REACTIONS (3)
  - Psoriatic arthropathy [Unknown]
  - Obesity [Not Recovered/Not Resolved]
  - Treatment noncompliance [Unknown]

NARRATIVE: CASE EVENT DATE: 20240101
